FAERS Safety Report 5107956-2 (Version None)
Quarter: 2006Q3

REPORT INFORMATION
  Report Type: 
  Country: None (occurrence: None)
  Receive Date: 20060919
  Receipt Date: 20060804
  Transmission Date: 20061208
  Serious: Yes (Other)
  Sender: FDA-Public Use
  Company Number: PHBS2006JP11974

PATIENT
  Age: 55 Year
  Sex: Female

DRUGS (3)
  1. ZOMETA [Suspect]
     Indication: METASTASES TO BONE
     Dosage: 4 MG
     Route: 041
     Dates: start: 20060601
  2. DEPAS [Concomitant]
  3. ARIMIDEX [Concomitant]

REACTIONS (1)
  - GASTRIC ULCER [None]
